FAERS Safety Report 8178295-0 (Version None)
Quarter: 2012Q1

REPORT INFORMATION
  Report Type: 
  Country: None (occurrence: None)
  Receive Date: 20120301
  Receipt Date: 20120223
  Transmission Date: 20120608
  Serious: Yes (Hospitalization)
  Sender: FDA-Public Use
  Company Number: US-TEVA-324125USA

PATIENT
  Age: 66 Year
  Sex: Male
  Weight: 62.289 kg

DRUGS (11)
  1. TRAZODONE HCL [Concomitant]
     Dates: start: 20120109
  2. LOPERAMIDE HCL [Concomitant]
     Dates: start: 20111123
  3. LEUCOVORIN CALCIUM [Suspect]
     Indication: OESOPHAGEAL CARCINOMA
     Dates: start: 20111128, end: 20120109
  4. VICODIN [Concomitant]
     Dates: start: 20111109
  5. METOCLOPRAMIDE [Concomitant]
     Dates: start: 20120109
  6. PROCHLORPERAZINE [Concomitant]
     Dates: start: 20111121
  7. OMEPRAZOLE [Concomitant]
     Dates: start: 20111123
  8. SUNITINIB MALATE [Suspect]
     Indication: OESOPHAGEAL CARCINOMA
     Dates: start: 20111129, end: 20120108
  9. IRINOTECAN HYDROCHLORIDE [Suspect]
     Indication: OESOPHAGEAL CARCINOMA
     Dates: start: 20111128, end: 20120109
  10. FLUOROURACIL [Suspect]
     Indication: OESOPHAGEAL CARCINOMA
     Dates: start: 20111128, end: 20120111
  11. LORAZEPAM [Concomitant]
     Dates: start: 20111123

REACTIONS (1)
  - INFECTION [None]
